FAERS Safety Report 23658475 (Version 1)
Quarter: 2024Q1

REPORT INFORMATION
  Report Type: Report from Study
  Country: US (occurrence: US)
  Receive Date: 20240321
  Receipt Date: 20240321
  Transmission Date: 20240410
  Serious: Yes (Hospitalization, Other)
  Sender: FDA-Public Use
  Company Number: US-GILEAD-2024-0665941

PATIENT
  Age: 6 Year
  Sex: Male

DRUGS (1)
  1. AZTREONAM LYSINE [Suspect]
     Active Substance: AZTREONAM LYSINE
     Indication: Cystic fibrosis lung
     Dosage: 75 MG, TID VIA NEBULIZER FOR 28 DAYS ON, THEN 28 DAYS OFF
     Route: 055
     Dates: start: 20220714

REACTIONS (1)
  - Pneumonia [Unknown]
